FAERS Safety Report 8145456-6 (Version None)
Quarter: 2012Q1

REPORT INFORMATION
  Report Type: 
  Country: None (occurrence: None)
  Receive Date: 20120217
  Receipt Date: 20120215
  Transmission Date: 20120608
  Serious: Yes (Other)
  Sender: FDA-Public Use
  Company Number: US-PFIZER INC-2012041375

PATIENT
  Sex: Male
  Weight: 63.492 kg

DRUGS (3)
  1. ASPIRIN [Concomitant]
     Dosage: 81 MG, UNK
  2. TRILEPTAL [Suspect]
     Indication: CONVULSION
     Dosage: 300 MG, 2X/DAY
     Route: 048
  3. DILANTIN [Suspect]
     Indication: CONVULSION
     Dosage: 100 MG, 4X/DAY
     Route: 048
     Dates: start: 19770101

REACTIONS (1)
  - MYOCARDIAL INFARCTION [None]
